FAERS Safety Report 9384306 (Version 4)
Quarter: 2013Q3

REPORT INFORMATION
  Report Type: Spontaneous
  Country: IT (occurrence: IT)
  Receive Date: 20130705
  Receipt Date: 20130809
  Transmission Date: 20140515
  Serious: Yes (Other)
  Sender: FDA-Public Use
  Company Number: PHHY2013IT068098

PATIENT
  Sex: Male

DRUGS (2)
  1. ZOMETA [Suspect]
     Indication: PROSTATE CANCER
     Dosage: 04 MG, MONTHLY
     Route: 042
     Dates: start: 20100101, end: 20121201
  2. DIBASE [Concomitant]
     Dosage: UNK UKN, UNK

REACTIONS (6)
  - Osteonecrosis of jaw [Not Recovered/Not Resolved]
  - Secondary sequestrum [Unknown]
  - Swelling [Not Recovered/Not Resolved]
  - Pain in jaw [Not Recovered/Not Resolved]
  - Dental discomfort [Not Recovered/Not Resolved]
  - Condition aggravated [Unknown]
